FAERS Safety Report 8682367 (Version 2)
Quarter: 2013Q2

REPORT INFORMATION
  Report Type: Spontaneous
  Country: BR (occurrence: BR)
  Receive Date: 20120725
  Receipt Date: 20130426
  Transmission Date: 20140414
  Serious: Yes (Hospitalization, Other)
  Sender: FDA-Public Use
  Company Number: BR-BRISTOL-MYERS SQUIBB COMPANY-16777880

PATIENT
  Age: 51 Year
  Sex: Male
  Weight: 103 kg

DRUGS (6)
  1. LISODREN TABS 500 MG [Suspect]
     Indication: ADRENAL GLAND CANCER
     Dosage: STARTED 500MG, INCREASED TO 1GM, INTERR OCT09?RESTART JUN11 AT 2G-INCREASED TO 4G
     Route: 048
  2. CISPLATIN [Suspect]
     Indication: ADRENAL GLAND CANCER
     Dates: start: 2011
  3. ETOPOSIDE [Suspect]
     Indication: ADRENAL GLAND CANCER
     Dates: start: 2011
  4. DOXORUBICIN [Suspect]
     Indication: ADRENAL GLAND CANCER
     Dates: start: 2011
  5. THALIDOMIDE [Concomitant]
  6. ONDANSETRON [Concomitant]

REACTIONS (8)
  - Neurotoxicity [Unknown]
  - Gastrointestinal toxicity [Unknown]
  - Immunodeficiency [Unknown]
  - Pyrexia [Unknown]
  - Headache [Unknown]
  - Malignant neoplasm progression [Unknown]
  - Dysentery [Unknown]
  - Drug dose omission [Unknown]
